FAERS Safety Report 8145660-7 (Version None)
Quarter: 2012Q1

REPORT INFORMATION
  Report Type: 
  Country: None (occurrence: None)
  Receive Date: 20120217
  Receipt Date: 20110420
  Transmission Date: 20120608
  Serious: No
  Sender: FDA-Public Use
  Company Number: US-ABBOTT-11P-163-0721028-00

PATIENT
  Sex: Male
  Weight: 81.72 kg

DRUGS (3)
  1. UNKNOWN SUPPLEMENTS [Concomitant]
     Indication: PRODUCT USED FOR UNKNOWN INDICATION
  2. MULTI-VITAMIN [Concomitant]
     Indication: PRODUCT USED FOR UNKNOWN INDICATION
  3. SIMCOR [Suspect]
     Indication: BLOOD CHOLESTEROL
     Dosage: 500/40MG, ONCE DAILY
     Dates: start: 20110331

REACTIONS (3)
  - FLUSHING [None]
  - CONJUNCTIVAL HAEMORRHAGE [None]
  - OCULAR HYPERAEMIA [None]
